FAERS Safety Report 19479480 (Version 6)
Quarter: 2023Q1

REPORT INFORMATION
  Report Type: Spontaneous
  Country: US (occurrence: US)
  Receive Date: 20210701
  Receipt Date: 20230125
  Transmission Date: 20230418
  Serious: Yes (Other)
  Sender: FDA-Public Use
  Company Number: US-JNJFOC-20210655438

PATIENT
  Age: 44 Year
  Sex: Female

DRUGS (16)
  1. ELMIRON [Suspect]
     Active Substance: PENTOSAN POLYSULFATE SODIUM
     Indication: Cystitis interstitial
     Route: 048
     Dates: start: 199701
  2. ELMIRON [Suspect]
     Active Substance: PENTOSAN POLYSULFATE SODIUM
     Route: 048
     Dates: start: 20000601, end: 20160430
  3. ZOLPIDEM [Concomitant]
     Active Substance: ZOLPIDEM TARTRATE
     Indication: Insomnia
     Dosage: 1 AT BEDTIME
     Route: 065
     Dates: start: 20050101
  4. METOPROLOL [Concomitant]
     Active Substance: METOPROLOL
     Indication: Hypertension
     Route: 065
     Dates: start: 20190101
  5. LOSARTAN POTASSIUM [Concomitant]
     Active Substance: LOSARTAN POTASSIUM
     Indication: Hypertension
     Route: 065
     Dates: start: 20190101
  6. LANSOPRAZOLE [Concomitant]
     Active Substance: LANSOPRAZOLE
     Indication: Dyspepsia
     Route: 065
     Dates: start: 20100101
  7. FUROSEMIDE [Concomitant]
     Active Substance: FUROSEMIDE
     Indication: Fluid retention
     Route: 065
     Dates: start: 20050101
  8. RIZATRIPTAN [Concomitant]
     Active Substance: RIZATRIPTAN
     Indication: Migraine
     Dosage: 1 DAILY AS NEEDED (UP TO 2-3 IF NEEDED)
     Route: 065
     Dates: start: 20100101
  9. BUPROPION HYDROCHLORIDE XL [Concomitant]
     Active Substance: BUPROPION HYDROCHLORIDE
     Indication: Depression
     Route: 065
     Dates: start: 20150101
  10. ESCITALOPRAM [Concomitant]
     Active Substance: ESCITALOPRAM OXALATE
     Indication: Depression
     Route: 065
     Dates: start: 20150101
  11. VALIUM [Concomitant]
     Active Substance: DIAZEPAM
     Indication: Depression
     Route: 065
     Dates: start: 20180101
  12. ONDANSETRON [Concomitant]
     Active Substance: ONDANSETRON
     Indication: Abdominal discomfort
     Dosage: AS NEEDED
     Route: 065
     Dates: start: 20190101
  13. SIMVASTATIN [Concomitant]
     Active Substance: SIMVASTATIN
     Indication: Blood cholesterol
     Route: 065
     Dates: start: 20190101
  14. TYLENOL EXTRA STRENGTH [Concomitant]
     Active Substance: ACETAMINOPHEN
     Indication: Analgesic therapy
     Dosage: 2 AS NEEDED (USUALLY THRICE A DAY)
     Route: 065
     Dates: start: 20150101
  15. ZANTAC [Concomitant]
     Active Substance: RANITIDINE HYDROCHLORIDE
     Indication: Dyspepsia
     Route: 065
     Dates: start: 20020101, end: 20140101
  16. ROBAXIN [Concomitant]
     Active Substance: METHOCARBAMOL
     Indication: Fibromyalgia
     Route: 065
     Dates: start: 20070101, end: 20160101

REACTIONS (2)
  - Neovascular age-related macular degeneration [Not Recovered/Not Resolved]
  - Retinal toxicity [Unknown]

NARRATIVE: CASE EVENT DATE: 19980101
